FAERS Safety Report 7693851-1 (Version None)
Quarter: 2011Q3

REPORT INFORMATION
  Report Type: 
  Country: None (occurrence: None)
  Receive Date: 20110819
  Receipt Date: 20110815
  Transmission Date: 20111222
  Serious: Yes (Death, Other)
  Sender: FDA-Public Use
  Company Number: US-ABBOTT-10P-163-0661147-00

PATIENT
  Weight: 4.767 kg

DRUGS (16)
  1. ENBREL [Suspect]
     Indication: MATERNAL EXPOSURE DURING PREGNANCY
     Route: 064
  2. MULTI-VITAMINS [Suspect]
     Indication: MATERNAL EXPOSURE DURING PREGNANCY
     Route: 064
  3. INFLUENZA VACCINE [Suspect]
     Indication: MATERNAL EXPOSURE DURING PREGNANCY
     Route: 064
  4. RHOGAM [Suspect]
     Route: 064
  5. FOLIC ACID [Suspect]
     Indication: MATERNAL EXPOSURE DURING PREGNANCY
     Route: 064
  6. RHOGAM [Suspect]
     Indication: MATERNAL EXPOSURE DURING PREGNANCY
     Route: 064
  7. CYCLOBENZAPRINE [Suspect]
     Indication: MATERNAL EXPOSURE DURING PREGNANCY
     Route: 064
  8. PREDNISONE [Suspect]
     Indication: MATERNAL EXPOSURE DURING PREGNANCY
     Route: 064
  9. CELEBREX [Suspect]
     Indication: MATERNAL EXPOSURE DURING PREGNANCY
     Route: 064
  10. IMURAN [Suspect]
     Indication: MATERNAL EXPOSURE DURING PREGNANCY
     Route: 064
  11. OMEPRAZOLE [Suspect]
     Indication: MATERNAL EXPOSURE DURING PREGNANCY
     Route: 064
  12. VITAMIN D [Suspect]
     Indication: MATERNAL EXPOSURE DURING PREGNANCY
     Route: 064
  13. MYLANTA [Suspect]
     Indication: MATERNAL EXPOSURE DURING PREGNANCY
     Route: 064
  14. HUMIRA [Suspect]
     Indication: MATERNAL EXPOSURE DURING PREGNANCY
     Route: 064
  15. TYLENOL-500 [Suspect]
     Indication: MATERNAL EXPOSURE DURING PREGNANCY
     Route: 064
  16. RHOGAM [Suspect]

REACTIONS (26)
  - GENERALISED OEDEMA [None]
  - RIGHT VENTRICULAR HYPERTROPHY [None]
  - BACTERIAL INFECTION [None]
  - ENTEROCOCCUS TEST POSITIVE [None]
  - NEONATAL PNEUMONIA [None]
  - RENAL HAEMORRHAGE [None]
  - CYANOSIS [None]
  - FOETAL DISTRESS SYNDROME [None]
  - CARDIOPULMONARY FAILURE [None]
  - CONGENITAL PULMONARY ARTERY ANOMALY [None]
  - LARGE FOR DATES BABY [None]
  - SEPTIC SHOCK [None]
  - PERSISTENT FOETAL CIRCULATION [None]
  - DILATATION VENTRICULAR [None]
  - NEONATAL ASPIRATION [None]
  - VENTRICULAR SEPTAL DEFECT [None]
  - MICROCEPHALY [None]
  - CONGENITAL HEPATOMEGALY [None]
  - CONGENITAL CENTRAL NERVOUS SYSTEM ANOMALY [None]
  - INFANTILE APNOEIC ATTACK [None]
  - RESPIRATORY FAILURE [None]
  - ESCHERICHIA SEPSIS [None]
  - CONGENITAL RENAL DISORDER [None]
  - BRADYCARDIA [None]
  - MATERNAL EXPOSURE DURING PREGNANCY [None]
  - EFFUSION [None]
